FAERS Safety Report 12372955 (Version 1)
Quarter: 2016Q2

REPORT INFORMATION
  Report Type: Other
  Country: IT (occurrence: IT)
  Receive Date: 20160516
  Receipt Date: 20160516
  Transmission Date: 20160815
  Serious: Yes (Other)
  Sender: FDA-Public Use
  Company Number: IT-MYLANLABS-2016M1016783

PATIENT

DRUGS (1)
  1. MYLAN-CLOPIDOGREL [Suspect]
     Active Substance: CLOPIDOGREL BISULFATE
     Indication: VENTRICULAR FAILURE
     Dosage: 75 MG DAILY
     Route: 048

REACTIONS (2)
  - Feeling hot [Unknown]
  - Pruritus generalised [Unknown]
